FAERS Safety Report 17329741 (Version 1)
Quarter: 2020Q1

REPORT INFORMATION
  Report Type: Spontaneous
  Country: US (occurrence: US)
  Receive Date: 20200127
  Receipt Date: 20200127
  Transmission Date: 20200409
  Serious: No
  Sender: FDA-Public Use
  Company Number: US-STALLERGENES SAS-2079442

PATIENT
  Age: 78 Year
  Sex: Male

DRUGS (10)
  1. ATORVASTATIN CALCIUM. [Concomitant]
     Active Substance: ATORVASTATIN CALCIUM
  2. EXELON [Concomitant]
     Active Substance: RIVASTIGMINE TARTRATE
  3. TRAVATAN [Concomitant]
     Active Substance: TRAVOPROST
  4. CYCLOSPORINE. [Concomitant]
     Active Substance: CYCLOSPORINE
  5. BUPROPION. [Concomitant]
     Active Substance: BUPROPION
  6. RESTASIS [Concomitant]
     Active Substance: CYCLOSPORINE
  7. ORALAIR [Suspect]
     Active Substance: ANTHOXANTHUM ODORATUM POLLEN\DACTYLIS GLOMERATA POLLEN\LOLIUM PERENNE POLLEN\PHLEUM PRATENSE POLLEN\POA PRATENSIS POLLEN
     Indication: SEASONAL ALLERGY
     Route: 060
     Dates: start: 20190429
  8. DOXYCYCLINE. [Concomitant]
     Active Substance: DOXYCYCLINE
  9. BENZONATATE. [Concomitant]
     Active Substance: BENZONATATE
  10. SERTRALINE [Concomitant]
     Active Substance: SERTRALINE HYDROCHLORIDE

REACTIONS (3)
  - Sinusitis [Unknown]
  - Off label use [Unknown]
  - Product use issue [Unknown]
